FAERS Safety Report 7428600-5 (Version None)
Quarter: 2011Q2

REPORT INFORMATION
  Report Type: 
  Country: None (occurrence: None)
  Receive Date: 20110421
  Receipt Date: 20100304
  Transmission Date: 20111010
  Serious: Yes (Other)
  Sender: FDA-Public Use
  Company Number: US-BAYER-201017530NA

PATIENT
  Age: 66 Year
  Sex: Male
  Weight: 139 kg

DRUGS (9)
  1. NIPRIDE [Concomitant]
     Dosage: 50 MG/250CC D5W
     Route: 042
     Dates: start: 20001013, end: 20001013
  2. ZOCOR [Concomitant]
  3. TRASYLOL [Suspect]
     Indication: CORONARY ARTERY BYPASS
     Dosage: UNK
     Dates: start: 20001013
  4. VERSED [Concomitant]
     Dosage: UNK
     Route: 042
     Dates: start: 20001013, end: 20001013
  5. DOBUTREX [Concomitant]
     Dosage: UNK
     Route: 042
     Dates: start: 20001013, end: 20001013
  6. AMIODARONE [Concomitant]
  7. LASIX [Concomitant]
  8. HEPARIN [Concomitant]
  9. METFORMIN [Concomitant]
     Dosage: 500 MG, UNK

REACTIONS (5)
  - RENAL INJURY [None]
  - RENAL FAILURE ACUTE [None]
  - RENAL FAILURE [None]
  - PAIN [None]
  - INJURY [None]
